FAERS Safety Report 5839573-0 (Version None)
Quarter: 2008Q3

REPORT INFORMATION
  Report Type: 
  Country: None (occurrence: None)
  Receive Date: 20080811
  Receipt Date: 20080612
  Transmission Date: 20090109
  Serious: No
  Sender: FDA-Public Use
  Company Number: A0732672A

PATIENT
  Sex: Female

DRUGS (2)
  1. TREXIMET [Suspect]
     Indication: MIGRAINE
     Dosage: 1MG UNKNOWN
     Route: 048
  2. FROVA [Concomitant]

REACTIONS (1)
  - DRUG INEFFECTIVE [None]
